FAERS Safety Report 26219028 (Version 1)
Quarter: 2025Q4

REPORT INFORMATION
  Report Type: Spontaneous
  Country: CA (occurrence: CA)
  Receive Date: 20251231
  Receipt Date: 20251231
  Transmission Date: 20260117
  Serious: Yes (Other)
  Sender: AMGEN
  Company Number: CA-AMGEN-CANSP2025254627

PATIENT

DRUGS (2)
  1. RITUXIMAB [Suspect]
     Active Substance: RITUXIMAB
     Indication: Prophylaxis
     Dosage: UNK
     Route: 065
  2. RITUXIMAB [Suspect]
     Active Substance: RITUXIMAB
     Indication: Epstein-Barr virus associated lymphoproliferative disorder

REACTIONS (5)
  - Epstein-Barr virus infection reactivation [Unknown]
  - Epstein-Barr virus associated lymphoproliferative disorder [Unknown]
  - COVID-19 [Unknown]
  - Haematological infection [Unknown]
  - Off label use [Unknown]
